FAERS Safety Report 19360271 (Version 6)
Quarter: 2022Q2

REPORT INFORMATION
  Report Type: Report from Study
  Country: IT (occurrence: None)
  Receive Date: 20210601
  Receipt Date: 20220619
  Transmission Date: 20220721
  Serious: Yes (Life-Threatening, Hospitalization)
  Sender: FDA-Public Use
  Company Number: IT-ROCHE-2839989

PATIENT
  Age: 64 Year
  Sex: Male
  Weight: 55.5 kg

DRUGS (9)
  1. ATEZOLIZUMAB [Suspect]
     Active Substance: ATEZOLIZUMAB
     Indication: Non-small cell lung cancer metastatic
     Dosage: ON DAY 1 OF EACH 21-DAY CYCLE?DOSE LAST STUDY DRUG ADMIN PRIOR AE IS 1200 MG 17-MAY-2021
     Route: 041
     Dates: start: 20210422
  2. CABOZANTINIB [Suspect]
     Active Substance: CABOZANTINIB
     Indication: Non-small cell lung cancer metastatic
     Dosage: ON DAYS 1-21 OF EACH CYCLE?DOSE LAST STUDY DRUG ADMIN PRIOR AE IS 40 MG 26-MAY-2021
     Route: 048
     Dates: start: 20210422
  3. NORVASC [Concomitant]
     Active Substance: AMLODIPINE BESYLATE
     Indication: Hypertension
     Route: 048
     Dates: start: 20200518
  4. ATORVASTATIN [Concomitant]
     Active Substance: ATORVASTATIN
     Indication: Dyslipidaemia
     Route: 048
  5. PANTOPRAZOLE SODIUM [Concomitant]
     Active Substance: PANTOPRAZOLE SODIUM
     Route: 048
  6. SODIUM BICARBONATE [Concomitant]
     Active Substance: SODIUM BICARBONATE
     Indication: Mucosal inflammation
     Dosage: MOUTHWASH
     Route: 048
  7. MYCOSTATIN [Concomitant]
     Active Substance: NYSTATIN
     Indication: Mucosal inflammation
     Route: 048
  8. FILGRASTIM [Concomitant]
     Active Substance: FILGRASTIM
     Indication: Neutropenia
     Route: 058
  9. LEVOFLOXACIN [Concomitant]
     Active Substance: LEVOFLOXACIN
     Indication: Pyrexia
     Route: 048
     Dates: start: 20210510, end: 20210516

REACTIONS (1)
  - Bronchial fistula [Not Recovered/Not Resolved]

NARRATIVE: CASE EVENT DATE: 20210525
